FAERS Safety Report 21637117 (Version 1)
Quarter: 2022Q4

REPORT INFORMATION
  Report Type: Spontaneous
  Country: US (occurrence: US)
  Receive Date: 20221124
  Receipt Date: 20221124
  Transmission Date: 20230112
  Serious: Yes (Other)
  Sender: FDA-Public Use
  Company Number: US-JNJFOC-20221143209

PATIENT
  Sex: Male

DRUGS (2)
  1. XARELTO [Suspect]
     Active Substance: RIVAROXABAN
     Indication: Pulmonary embolism
     Route: 048
  2. COVID-19 VACCINE NOS [Suspect]
     Active Substance: COVID-19 VACCINE NOS
     Indication: COVID-19 prophylaxis
     Route: 065

REACTIONS (9)
  - Myocardial infarction [Unknown]
  - Prostate cancer [Unknown]
  - Fatigue [Unknown]
  - Hypotension [Unknown]
  - Gait disturbance [Unknown]
  - Increased tendency to bruise [Unknown]
  - Anosmia [Unknown]
  - Ageusia [Unknown]
  - Off label use [Unknown]
